FAERS Safety Report 4456558-X (Version None)
Quarter: 2004Q3

REPORT INFORMATION
  Report Type: 
  Country: None (occurrence: None)
  Receive Date: 20040921
  Receipt Date: 20040913
  Transmission Date: 20050211
  Serious: Yes (Death, Hospitalization, Other)
  Sender: FDA-Public Use
  Company Number: US-JNJFOC-20040903566

PATIENT
  Age: 20 Year
  Sex: Female

DRUGS (2)
  1. TYLENOL   REGULAR STRENGTH   (ACETAMINOPHEN) [Suspect]
     Indication: SUICIDE ATTEMPT
     Dosage: 975 MG, 1 IN 1 DAY, ORAL
     Route: 048
  2. OLANZAPINE [Suspect]
     Indication: SUICIDE ATTEMPT
     Dosage: 465 MG, 1 IN 1 DAY, ORAL
     Route: 048

REACTIONS (9)
  - ASPIRATION [None]
  - CARDIAC ARREST [None]
  - ELECTROCARDIOGRAM QRS COMPLEX PROLONGED [None]
  - GENERAL PHYSICAL HEALTH DETERIORATION [None]
  - MULTIPLE DRUG OVERDOSE [None]
  - OXYGEN SATURATION DECREASED [None]
  - SINUS TACHYCARDIA [None]
  - SUICIDE ATTEMPT [None]
  - VOMITING [None]
